FAERS Safety Report 9867046 (Version 1)
Quarter: 2014Q1

REPORT INFORMATION
  Report Type: Spontaneous
  Country: US (occurrence: None)
  Receive Date: 20140203
  Receipt Date: 20140203
  Transmission Date: 20141002
  Serious: Yes (Life-Threatening)
  Sender: FDA-Public Use
  Company Number: None

PATIENT
  Age: 59 Year
  Sex: Male
  Weight: 142.88 kg

DRUGS (3)
  1. MORPHINE SULFATE ER [Suspect]
     Indication: PAIN
     Dosage: 8 DAILY TAKEN BY MOUTH
     Route: 048
  2. MORPHINE SULFATE ER [Suspect]
     Indication: INTERVERTEBRAL DISC PROTRUSION
     Dosage: 8 DAILY TAKEN BY MOUTH
     Route: 048
  3. MORPHINE SULFATE ER [Suspect]
     Indication: NERVE COMPRESSION
     Dosage: 8 DAILY TAKEN BY MOUTH
     Route: 048

REACTIONS (6)
  - Drug withdrawal syndrome [None]
  - Quality of life decreased [None]
  - Product quality issue [None]
  - Product formulation issue [None]
  - Product packaging issue [None]
  - Condition aggravated [None]
